FAERS Safety Report 15566373 (Version 1)
Quarter: 2018Q4

REPORT INFORMATION
  Report Type: Spontaneous
  Country: AR (occurrence: AR)
  Receive Date: 20181030
  Receipt Date: 20181030
  Transmission Date: 20190205
  Serious: Yes (Other)
  Sender: FDA-Public Use
  Company Number: AR-VIFOR (INTERNATIONAL) INC.-VIT-2018-10544

PATIENT
  Age: 44 Year
  Sex: Male

DRUGS (1)
  1. MIRCERA [Suspect]
     Active Substance: METHOXY POLYETHYLENE GLYCOL-EPOETIN BETA
     Indication: ANAEMIA
     Route: 065
     Dates: start: 2018

REACTIONS (4)
  - Traumatic haemorrhage [Not Recovered/Not Resolved]
  - Overdose [Unknown]
  - Impaired healing [Not Recovered/Not Resolved]
  - White blood cell count decreased [Not Recovered/Not Resolved]
